FAERS Safety Report 7415483-2 (Version None)
Quarter: 2011Q2

REPORT INFORMATION
  Report Type: 
  Country: None (occurrence: None)
  Receive Date: 20110414
  Receipt Date: 20110330
  Transmission Date: 20111010
  Serious: Yes (Death, Hospitalization, Disabling, Other)
  Sender: FDA-Public Use
  Company Number: JP-CELGENEUS-087-21880-10120748

PATIENT
  Sex: Male
  Weight: 57.1 kg

DRUGS (11)
  1. LENADEX [Suspect]
     Indication: MULTIPLE MYELOMA
     Dosage: 40 MILLIGRAM
     Route: 048
     Dates: start: 20101106, end: 20101125
  2. LENADEX [Suspect]
     Dosage: 20 MILLIGRAM
     Route: 048
     Dates: start: 20101126, end: 20101210
  3. GASTER [Concomitant]
     Indication: PROPHYLAXIS
     Dosage: 20 MILLIGRAM
     Route: 048
     Dates: start: 20101021, end: 20101210
  4. MYONAL [Concomitant]
     Indication: PROPHYLAXIS
     Dosage: 150 MILLIGRAM
     Route: 048
     Dates: start: 20101021, end: 20101210
  5. BAKTAR [Concomitant]
     Dosage: 1 GRAM
     Route: 048
     Dates: end: 20101210
  6. LOXONIN [Concomitant]
     Indication: MULTIPLE MYELOMA
     Dosage: 180 MILLIGRAM
     Route: 048
     Dates: start: 20101021, end: 20101210
  7. SELBEX [Concomitant]
     Indication: PROPHYLAXIS
     Dosage: 150 MILLIGRAM
     Route: 048
     Dates: start: 20101021, end: 20101210
  8. BAKTAR [Concomitant]
     Indication: PROPHYLAXIS
     Dosage: 500 MILLIGRAM
     Route: 048
     Dates: start: 20101021
  9. FLUCONAZOLE [Concomitant]
     Indication: PROPHYLAXIS
     Dosage: 100 MILLIGRAM
     Route: 048
     Dates: start: 20101021, end: 20101210
  10. REVLIMID [Suspect]
     Indication: MULTIPLE MYELOMA
     Dosage: 25 MILLIGRAM
     Route: 048
     Dates: start: 20101106, end: 20101210
  11. MAGMITT [Concomitant]
     Indication: CONSTIPATION
     Dosage: 750 MILLIGRAM
     Route: 048
     Dates: start: 20101021, end: 20101210

REACTIONS (6)
  - DEEP VEIN THROMBOSIS [None]
  - SEPSIS [None]
  - DRUG ERUPTION [None]
  - PULMONARY EMBOLISM [None]
  - PLATELET COUNT DECREASED [None]
  - HEPATIC FUNCTION ABNORMAL [None]
